FAERS Safety Report 10066301 (Version 3)
Quarter: 2014Q2

REPORT INFORMATION
  Report Type: Report from Study
  Country: US (occurrence: US)
  Receive Date: 20140408
  Receipt Date: 20140528
  Transmission Date: 20141212
  Serious: Yes (Other)
  Sender: FDA-Public Use
  Company Number: PHEH2012US018242

PATIENT
  Sex: Male
  Weight: 63.49 kg

DRUGS (6)
  1. GILENYA [Suspect]
     Indication: MULTIPLE SCLEROSIS
     Dosage: 0.5 MG, DAILY
     Route: 048
     Dates: start: 20120321, end: 201301
  2. FISH OIL [Concomitant]
     Dosage: 1000 MG, UNK
  3. CALCIUM WITH VITAMIN D [Concomitant]
  4. GINKOBA [Concomitant]
     Dosage: 40 MG, UNK
  5. DHEA [Concomitant]
     Dosage: 25 MG, UNK
  6. CLARITIN [Concomitant]
     Dosage: 10 MG, UNK

REACTIONS (6)
  - White blood cell count decreased [Unknown]
  - Central nervous system lesion [Unknown]
  - Urinary retention [Unknown]
  - Nystagmus [Unknown]
  - Visual acuity reduced [Unknown]
  - Hepatic enzyme increased [Unknown]
